FAERS Safety Report 7725101-1 (Version None)
Quarter: 2011Q3

REPORT INFORMATION
  Report Type: 
  Country: None (occurrence: None)
  Receive Date: 20110901
  Receipt Date: 20110826
  Transmission Date: 20111222
  Serious: Yes (Other)
  Sender: FDA-Public Use
  Company Number: US-SANOFI-AVENTIS-2011SA055607

PATIENT
  Sex: Male

DRUGS (1)
  1. LANTUS [Suspect]
     Route: 058

REACTIONS (1)
  - ANKLE FRACTURE [None]
